FAERS Safety Report 22646598 (Version 1)
Quarter: 2023Q2

REPORT INFORMATION
  Report Type: Spontaneous
  Country: CL (occurrence: CL)
  Receive Date: 20230627
  Receipt Date: 20230627
  Transmission Date: 20230722
  Serious: Yes (Other)
  Sender: FDA-Public Use
  Company Number: CL-MYLANLABS-2023M1066721

PATIENT
  Sex: Male

DRUGS (4)
  1. CLOZAPINE [Suspect]
     Active Substance: CLOZAPINE
     Indication: Product used for unknown indication
     Dosage: 500 MILLIGRAM, QD (DAILY)
     Route: 048
     Dates: start: 20151102
  2. ARIPIPRAZOLE [Concomitant]
     Active Substance: ARIPIPRAZOLE
     Dosage: DAILY DOSE (UNIT 2 REGIMEN 15 MG)
     Route: 048
  3. ECTIEN XR [Concomitant]
     Dosage: DAILY DOSE (UNIT 2 REGIMEN 37.5 MG)
     Route: 048
  4. HALDOL [Concomitant]
     Active Substance: HALOPERIDOL
     Dosage: DAILY DOSE (UNIT 1.5 REGIMEN 1 MG)
     Route: 048

REACTIONS (2)
  - Superinfection viral [Unknown]
  - Superinfection bacterial [Unknown]
